FAERS Safety Report 9858763 (Version 2)
Quarter: 2014Q1

REPORT INFORMATION
  Report Type: Report from Study
  Country: JP (occurrence: JP)
  Receive Date: 20140131
  Receipt Date: 20140305
  Transmission Date: 20141002
  Serious: Yes (Hospitalization)
  Sender: FDA-Public Use
  Company Number: JP-ELI_LILLY_AND_COMPANY-JP201401008742

PATIENT
  Sex: Female

DRUGS (2)
  1. TERIPARATIDE [Suspect]
     Indication: PRODUCT USED FOR UNKNOWN INDICATION
     Dosage: UNK
     Route: 058
     Dates: end: 20131118
  2. TERIPARATIDE [Suspect]
     Dosage: UNK
     Route: 058

REACTIONS (4)
  - Fat tissue increased [Unknown]
  - Malaise [Unknown]
  - Injection site bruising [Unknown]
  - Back pain [Unknown]
